FAERS Safety Report 5019208-X (Version None)
Quarter: 2006Q2

REPORT INFORMATION
  Report Type: 
  Country: None (occurrence: None)
  Receive Date: 20060531
  Receipt Date: 20060515
  Transmission Date: 20061013
  Serious: Yes (Other)
  Sender: FDA-Public Use
  Company Number: 0600280US

PATIENT
  Age: 81 Year
  Sex: Female

DRUGS (1)
  1. EXOCIN(OFLOXACIN) EYE DROPS, SOLUTION, 0.3% [Suspect]
     Indication: KERATITIS
     Dosage: 1 GTT, Q 1HR, OPHTHALMIC
     Route: 047

REACTIONS (2)
  - CORNEAL PERFORATION [None]
  - DRUG INEFFECTIVE [None]
